FAERS Safety Report 7581088-6 (Version None)
Quarter: 2011Q2

REPORT INFORMATION
  Report Type: 
  Country: None (occurrence: None)
  Receive Date: 20110629
  Receipt Date: 20110613
  Transmission Date: 20111010
  Serious: No
  Sender: FDA-Public Use
  Company Number: US-B.I. PHARMACEUTICALS,INC./RIDGEFIELD-2011-BP-05685BP

PATIENT
  Sex: Female

DRUGS (12)
  1. SYNTHROID [Concomitant]
     Indication: HYPOTHYROIDISM
     Dosage: 0.1 MG
     Dates: start: 20030101
  2. LISINOPRIL [Concomitant]
     Indication: HYPERTENSION
     Dosage: 40 MG
  3. LIPITOR [Concomitant]
     Indication: BLOOD CHOLESTEROL INCREASED
     Dosage: 5 MG
  4. PRADAXA [Suspect]
     Dosage: 300 MG
     Route: 048
  5. ALBUTEROL SO4 [Concomitant]
     Indication: WHEEZING
     Dosage: 2 MG
  6. MAGNESIUM [Concomitant]
     Indication: SUPPLEMENTATION THERAPY
     Dosage: 125 MG
  7. COQ10 [Concomitant]
     Indication: SUPPLEMENTATION THERAPY
     Dosage: 50 MG
  8. OSCAL [Concomitant]
     Indication: SUPPLEMENTATION THERAPY
  9. FUROSEMIDE [Concomitant]
     Indication: DIURETIC THERAPY
     Dosage: 20 MG
  10. PRADAXA [Suspect]
     Indication: ATRIAL FIBRILLATION
     Dosage: 300 MG
     Route: 048
     Dates: start: 20110114
  11. EVISTA [Concomitant]
     Indication: OSTEOPOROSIS
     Dosage: 60 MG
  12. POTASSIUM [Concomitant]

REACTIONS (3)
  - CHEST DISCOMFORT [None]
  - OROPHARYNGEAL DISCOMFORT [None]
  - DYSPEPSIA [None]
